FAERS Safety Report 4493592-8 (Version None)
Quarter: 2004Q3

REPORT INFORMATION
  Report Type: 
  Country: None (occurrence: None)
  Receive Date: 20040921
  Receipt Date: 20040209
  Transmission Date: 20050211
  Serious: Yes (Death)
  Sender: FDA-Public Use
  Company Number: 163-20785-04020243

PATIENT
  Age: 63 Year
  Sex: Female
  Weight: 71.6683 kg

DRUGS (19)
  1. THALOMID [Suspect]
     Indication: BREAST CANCER FEMALE
     Dosage: 200 MG, DAILY, ORAL
     Route: 048
     Dates: start: 20031009, end: 20031215
  2. CAPECITABINE (CAPECITABINE) [Suspect]
     Indication: BREAST CANCER FEMALE
     Dosage: 3000 MG, ORAL
     Route: 048
     Dates: start: 20031009, end: 20031208
  3. LASIX [Concomitant]
  4. LOPRESSOR [Concomitant]
  5. CELEXA [Concomitant]
  6. XANAX [Concomitant]
  7. ALTACE [Concomitant]
  8. B-COMPLEX (TABLETS) [Concomitant]
  9. CENTRUM SILVER (CENTRUM SILVER) (TABLETS) [Concomitant]
  10. CLARITIN [Concomitant]
  11. ZOFRAN [Concomitant]
  12. IRON (IRON) (TABLETS) [Concomitant]
  13. AMBIEN [Concomitant]
  14. HUMALOG [Concomitant]
  15. CALTRATE (CALCIUM CARBONATE) (TABLETS) [Concomitant]
  16. VITAMIN E [Concomitant]
  17. BUMEX [Concomitant]
  18. FLUZONE [Concomitant]
  19. ARANESP [Concomitant]

REACTIONS (3)
  - DEATH [None]
  - DISEASE PROGRESSION [None]
  - METASTASES TO CENTRAL NERVOUS SYSTEM [None]
